FAERS Safety Report 8624522-2 (Version None)
Quarter: 2012Q3

REPORT INFORMATION
  Report Type: 
  Country: None (occurrence: None)
  Receive Date: 20120827
  Receipt Date: 20120816
  Transmission Date: 20120928
  Serious: Yes (Hospitalization)
  Sender: FDA-Public Use
  Company Number: CH-JNJFOC-20120807462

PATIENT
  Age: 69 Year
  Sex: Male

DRUGS (15)
  1. HYDROCORTISONE [Concomitant]
     Route: 065
  2. MEFENAMIC ACID [Suspect]
     Indication: PAIN
     Dosage: AS NECESSARY
     Route: 048
     Dates: start: 20120705, end: 20120722
  3. METHOTREXATE [Suspect]
     Indication: PRODUCT USED FOR UNKNOWN INDICATION
     Route: 058
     Dates: start: 20120718
  4. ACETAMINOPHEN [Concomitant]
     Route: 065
  5. DOXORUBICIN HCL [Suspect]
     Indication: PRODUCT USED FOR UNKNOWN INDICATION
     Dosage: TOTAL CUMULATES DOSE 880MG
     Route: 042
     Dates: end: 20120705
  6. MEFENAMIC ACID [Suspect]
     Indication: PYREXIA
     Dosage: AS NECESSARY
     Route: 048
     Dates: start: 20120705, end: 20120722
  7. TARGRETIN [Suspect]
     Indication: PRODUCT USED FOR UNKNOWN INDICATION
     Route: 048
  8. FENOFIBRATE [Concomitant]
     Route: 065
  9. LEVOTHYROXINE SODIUM [Concomitant]
     Route: 065
  10. ASPIRIN [Suspect]
     Indication: PRODUCT USED FOR UNKNOWN INDICATION
     Route: 048
     Dates: end: 20120722
  11. METFORMIN HCL [Concomitant]
     Route: 065
  12. NOVALGINE [Suspect]
     Indication: PAIN
     Dosage: AS NECESSARY
     Route: 048
     Dates: start: 20120705, end: 20120722
  13. METHOTREXATE [Suspect]
     Route: 058
     Dates: start: 20120711
  14. NOVALGINE [Suspect]
     Indication: PYREXIA
     Dosage: AS NECESSARY
     Route: 048
     Dates: start: 20120705, end: 20120722
  15. CARVEDILOL [Concomitant]
     Route: 065

REACTIONS (8)
  - MELAENA [None]
  - TOXIC EPIDERMAL NECROLYSIS [None]
  - SKIN LESION [None]
  - GLOMERULAR FILTRATION RATE DECREASED [None]
  - AGRANULOCYTOSIS [None]
  - MUCOSAL INFLAMMATION [None]
  - PANCYTOPENIA [None]
  - RENAL FAILURE ACUTE [None]
